FAERS Safety Report 17411050 (Version 1)
Quarter: 2020Q1

REPORT INFORMATION
  Report Type: Spontaneous
  Country: US (occurrence: US)
  Receive Date: 20200212
  Receipt Date: 20200212
  Transmission Date: 20200409
  Serious: Yes (Hospitalization)
  Sender: FDA-Public Use
  Company Number: US-ACTELION-A-NJ2020-201632

PATIENT
  Age: 83 Year
  Sex: Female
  Weight: 51 kg

DRUGS (9)
  1. ZAROXOLYN [Concomitant]
     Active Substance: METOLAZONE
  2. SENNA [Concomitant]
     Active Substance: SENNA LEAF\SENNOSIDES\SENNOSIDES A AND B
  3. DEMADEX [Concomitant]
     Active Substance: TORSEMIDE
  4. MUCINEX [Concomitant]
     Active Substance: GUAIFENESIN
  5. AMIODARONE [Concomitant]
     Active Substance: AMIODARONE
  6. ELIQUIS [Concomitant]
     Active Substance: APIXABAN
  7. MACITENTAN [Concomitant]
     Active Substance: MACITENTAN
     Indication: PULMONARY ARTERIAL HYPERTENSION
  8. ADEMPAS [Concomitant]
     Active Substance: RIOCIGUAT
     Indication: PULMONARY ARTERIAL HYPERTENSION
  9. UPTRAVI [Suspect]
     Active Substance: SELEXIPAG
     Indication: PULMONARY ARTERIAL HYPERTENSION
     Dosage: 1200 MCG
     Route: 048

REACTIONS (1)
  - Hypotension [Unknown]
